FAERS Safety Report 6104034-0 (Version None)
Quarter: 2009Q1

REPORT INFORMATION
  Report Type: 
  Country: None (occurrence: None)
  Receive Date: 20090227
  Receipt Date: 20090219
  Transmission Date: 20090719
  Serious: Yes (Hospitalization, Other)
  Sender: FDA-Public Use
  Company Number: 2009SP001050

PATIENT
  Age: 71 Year
  Sex: Female
  Weight: 51 kg

DRUGS (3)
  1. DIPROSONE [Suspect]
     Indication: ASTHMA
     Dosage: 1 DF;UNK;IM
     Route: 030
  2. BERODUAL [Concomitant]
  3. MARCUMAR [Concomitant]

REACTIONS (13)
  - ATRIAL FIBRILLATION [None]
  - C-REACTIVE PROTEIN INCREASED [None]
  - DERMATITIS [None]
  - DISORIENTATION [None]
  - EPILEPSY [None]
  - HEADACHE [None]
  - HYPERTHYROIDISM [None]
  - SKIN LESION [None]
  - SOMNOLENCE [None]
  - STEROID WITHDRAWAL SYNDROME [None]
  - THYROID ADENOMA [None]
  - UNRESPONSIVE TO STIMULI [None]
  - VOMITING [None]
